FAERS Safety Report 7731051-7 (Version None)
Quarter: 2011Q3

REPORT INFORMATION
  Report Type: 
  Country: None (occurrence: None)
  Receive Date: 20110906
  Receipt Date: 20110906
  Transmission Date: 20111222
  Serious: Yes (Death)
  Sender: FDA-Public Use
  Company Number: None

PATIENT
  Sex: Male
  Weight: 77.11 kg

DRUGS (1)
  1. LOPRESSOR [Suspect]
     Indication: SYNCOPE
     Dosage: ?
     Dates: start: 20110729, end: 20110831

REACTIONS (2)
  - HEART RATE DECREASED [None]
  - SYNCOPE [None]
